FAERS Safety Report 4978441-3 (Version None)
Quarter: 2006Q2

REPORT INFORMATION
  Report Type: 
  Country: None (occurrence: None)
  Receive Date: 20060420
  Receipt Date: 20051130
  Transmission Date: 20061013
  Serious: Yes (Death)
  Sender: FDA-Public Use
  Company Number: JP-BOEHRINGER INGELHEIM PHARMACEUTICALS, INC.-2005-BP-20795NB

PATIENT
  Age: 76 Year
  Sex: Male

DRUGS (1)
  1. MEXITIL [Suspect]
     Route: 048
     Dates: start: 20030601, end: 20030701

REACTIONS (2)
  - DRUG HYPERSENSITIVITY [None]
  - MULTI-ORGAN FAILURE [None]
